FAERS Safety Report 6369933-3 (Version None)
Quarter: 2009Q3

REPORT INFORMATION
  Report Type: 
  Country: None (occurrence: None)
  Receive Date: 20090923
  Receipt Date: 20070515
  Transmission Date: 20100115
  Serious: Yes (Hospitalization)
  Sender: FDA-Public Use
  Company Number: US-ASTRAZENECA-2006UW10780

PATIENT
  Age: 547 Month
  Sex: Male
  Weight: 95.3 kg

DRUGS (18)
  1. SEROQUEL [Suspect]
     Indication: DEPRESSION
     Route: 048
     Dates: start: 20040801, end: 20050801
  2. SEROQUEL [Suspect]
     Indication: SCHIZOPHRENIA
     Route: 048
     Dates: start: 20040801, end: 20050801
  3. SEROQUEL [Suspect]
     Indication: PARANOIA
     Route: 048
     Dates: start: 20040801, end: 20050801
  4. SEROQUEL [Suspect]
     Indication: OBSESSIVE-COMPULSIVE DISORDER
     Route: 048
     Dates: start: 20040801, end: 20050801
  5. SEROQUEL [Suspect]
     Dosage: 25-200 MG
     Route: 048
     Dates: start: 20011102
  6. SEROQUEL [Suspect]
     Dosage: 25-200 MG
     Route: 048
     Dates: start: 20011102
  7. SEROQUEL [Suspect]
     Dosage: 25-200 MG
     Route: 048
     Dates: start: 20011102
  8. SEROQUEL [Suspect]
     Dosage: 25-200 MG
     Route: 048
     Dates: start: 20011102
  9. HALDOL [Concomitant]
  10. RISPERDAL [Concomitant]
  11. ZYPREXA [Concomitant]
  12. LUVOX [Concomitant]
     Dosage: 50-200 MG
     Route: 048
     Dates: start: 20020920
  13. VISTARIL [Concomitant]
     Dosage: 25-100 MG
     Route: 048
     Dates: start: 20011129
  14. BENADRYL [Concomitant]
     Dosage: 25-50 MG
     Dates: start: 20011102
  15. ALLEGRA [Concomitant]
     Dates: start: 20040210
  16. ADVAIR DISKUS 100/50 [Concomitant]
     Dosage: ONE PUFF TWICE DAILY
     Dates: start: 20040210
  17. CLARINEX [Concomitant]
     Dates: start: 20040621
  18. LORATADINE [Concomitant]
     Dates: start: 20041028

REACTIONS (2)
  - ASTHMA [None]
  - DIABETES MELLITUS [None]
